FAERS Safety Report 5187352-2 (Version None)
Quarter: 2006Q4

REPORT INFORMATION
  Report Type: 
  Country: None (occurrence: None)
  Receive Date: 20061220
  Receipt Date: 20060713
  Transmission Date: 20070319
  Serious: No
  Sender: FDA-Public Use
  Company Number: US-AMGEN-US186316

PATIENT
  Sex: Male

DRUGS (1)
  1. ENBREL [Suspect]
     Indication: ANKYLOSING SPONDYLITIS
     Route: 058
     Dates: start: 20060401

REACTIONS (3)
  - PARANASAL SINUS HYPERSECRETION [None]
  - PHARYNGOLARYNGEAL PAIN [None]
  - SINUS HEADACHE [None]
